FAERS Safety Report 6363834-2 (Version None)
Quarter: 2009Q3

REPORT INFORMATION
  Report Type: 
  Country: None (occurrence: None)
  Receive Date: 20090919
  Receipt Date: 20090709
  Transmission Date: 20100115
  Serious: Yes (Other)
  Sender: FDA-Public Use
  Company Number: US-ABBOTT-09P-163-0584524-00

PATIENT
  Sex: Female
  Weight: 58.566 kg

DRUGS (5)
  1. HUMIRA [Suspect]
     Indication: RHEUMATOID ARTHRITIS
     Route: 058
     Dates: start: 20071102, end: 20090501
  2. HUMIRA [Suspect]
     Route: 058
     Dates: start: 20090709
  3. METHOTREXATE [Suspect]
     Indication: RHEUMATOID ARTHRITIS
     Dosage: 2.5 MG, FIVE TABLETS A WEEK
     Route: 048
  4. VICODIN [Concomitant]
     Indication: PROCEDURAL PAIN
     Dosage: PRN
     Route: 048
     Dates: start: 20090511, end: 20090512
  5. IBUPROFEN [Concomitant]
     Indication: PROCEDURAL PAIN
     Dosage: PRN
     Route: 048
     Dates: start: 20090511

REACTIONS (6)
  - ALOPECIA [None]
  - ARTHRALGIA [None]
  - CHOLELITHIASIS [None]
  - INJECTION SITE DISCOLOURATION [None]
  - INJECTION SITE ERYTHEMA [None]
  - JOINT CREPITATION [None]
